FAERS Safety Report 20708783 (Version 1)
Quarter: 2022Q2

REPORT INFORMATION
  Report Type: Spontaneous
  Country: FR (occurrence: FR)
  Receive Date: 20220414
  Receipt Date: 20220414
  Transmission Date: 20220721
  Serious: Yes (Death)
  Sender: FDA-Public Use
  Company Number: FR-BRISTOL-MYERS SQUIBB COMPANY-2022-018971

PATIENT

DRUGS (2)
  1. ELIQUIS [Suspect]
     Active Substance: APIXABAN
     Indication: Embolism
     Dosage: DOSE : UNAVAILABLE;     FREQ : UNAVAILABLE
     Route: 065
  2. ELIQUIS [Suspect]
     Active Substance: APIXABAN
     Indication: Friedreich^s ataxia

REACTIONS (2)
  - COVID-19 [Fatal]
  - Nervous system disorder [Fatal]

NARRATIVE: CASE EVENT DATE: 20211101
